FAERS Safety Report 8108430-1 (Version None)
Quarter: 2012Q1

REPORT INFORMATION
  Report Type: 
  Country: None (occurrence: None)
  Receive Date: 20120202
  Receipt Date: 20120131
  Transmission Date: 20120608
  Serious: Yes (Hospitalization)
  Sender: FDA-Public Use
  Company Number: PHEH2012US002786

PATIENT
  Age: 15 Year
  Sex: Female
  Weight: 45.351 kg

DRUGS (2)
  1. TOBI [Suspect]
     Dosage: 300 MG, BID
     Dates: start: 20110228
  2. PULMOZYME [Concomitant]

REACTIONS (1)
  - PNEUMONIA [None]
